FAERS Safety Report 6532776-1 (Version None)
Quarter: 2010Q1

REPORT INFORMATION
  Report Type: 
  Country: None (occurrence: None)
  Receive Date: 20100111
  Receipt Date: 20100107
  Transmission Date: 20100710
  Serious: Yes (Death, Hospitalization)
  Sender: FDA-Public Use
  Company Number: PHHY2009JP53154

PATIENT
  Sex: Female
  Weight: 75 kg

DRUGS (8)
  1. TEGRETOL [Suspect]
     Dosage: UNK
     Route: 048
     Dates: end: 20091129
  2. VANARL N [Concomitant]
     Dosage: UNK
     Route: 048
     Dates: end: 20091129
  3. MINIPRESS [Concomitant]
     Dosage: UNK
     Route: 048
     Dates: end: 20091129
  4. CALSLOT [Concomitant]
     Dosage: UNK
     Route: 048
     Dates: end: 20091129
  5. DICHLOTRIDE [Concomitant]
     Dosage: UNK
     Route: 048
     Dates: end: 20091129
  6. LOWGAN [Concomitant]
     Dosage: UNK
     Route: 048
     Dates: end: 20091129
  7. ISALON [Concomitant]
     Dosage: UNK
     Route: 048
     Dates: end: 20091129
  8. LOXONIN [Concomitant]
     Dosage: UNK
     Route: 048
     Dates: end: 20091129

REACTIONS (10)
  - DISSEMINATED INTRAVASCULAR COAGULATION [None]
  - LIVER DISORDER [None]
  - MYELODYSPLASTIC SYNDROME [None]
  - PANCYTOPENIA [None]
  - PLATELET COUNT DECREASED [None]
  - PYREXIA [None]
  - RED BLOOD CELL COUNT DECREASED [None]
  - RENAL FAILURE [None]
  - SEPSIS [None]
  - WHITE BLOOD CELL COUNT DECREASED [None]
